FAERS Safety Report 7334573-6 (Version None)
Quarter: 2011Q1

REPORT INFORMATION
  Report Type: 
  Country: None (occurrence: None)
  Receive Date: 20110307
  Receipt Date: 20100826
  Transmission Date: 20110831
  Serious: No
  Sender: FDA-Public Use
  Company Number: A0878774A

PATIENT
  Sex: Female

DRUGS (1)
  1. REQUIP [Suspect]
     Dosage: 1MG UNKNOWN
     Route: 065
     Dates: start: 20100303, end: 20100606

REACTIONS (1)
  - MUSCLE TWITCHING [None]
